FAERS Safety Report 20005456 (Version 1)
Quarter: 2021Q4

REPORT INFORMATION
  Report Type: Spontaneous
  Country: US (occurrence: US)
  Receive Date: 20211027
  Receipt Date: 20211027
  Transmission Date: 20220303
  Serious: Yes (Hospitalization)
  Sender: FDA-Public Use
  Company Number: None

PATIENT
  Age: 38 Year
  Sex: Female

DRUGS (2)
  1. JADENU [Suspect]
     Active Substance: DEFERASIROX
     Indication: Haemochromatosis
     Route: 048
     Dates: start: 20180822
  2. JADENU [Suspect]
     Active Substance: DEFERASIROX
     Indication: Transfusion related complication

REACTIONS (3)
  - Sickle cell anaemia with crisis [None]
  - Blood disorder [None]
  - Laboratory test abnormal [None]

NARRATIVE: CASE EVENT DATE: 20211009
